FAERS Safety Report 12074800 (Version 1)
Quarter: 2016Q1

REPORT INFORMATION
  Report Type: Spontaneous
  Country: US (occurrence: US)
  Receive Date: 20160212
  Receipt Date: 20160212
  Transmission Date: 20160526
  Serious: Yes (Death)
  Sender: FDA-Public Use
  Company Number: US-BAUSCH-BL-2016-003693

PATIENT
  Age: 54 Year
  Sex: Male

DRUGS (1)
  1. XENAZINE [Suspect]
     Active Substance: TETRABENAZINE
     Indication: HUNTINGTON^S DISEASE
     Dosage: 25 MG IN AM AND 12.5MG NOON
     Route: 048
     Dates: start: 201211

REACTIONS (1)
  - Death [Fatal]

NARRATIVE: CASE EVENT DATE: 20151228
